FAERS Safety Report 11419852 (Version 2)
Quarter: 2015Q3

REPORT INFORMATION
  Report Type: Spontaneous
  Country: US (occurrence: US)
  Receive Date: 20150826
  Receipt Date: 20150828
  Transmission Date: 20151125
  Serious: No
  Sender: FDA-Public Use
  Company Number: US-HORIZON-PRE-0134-2015

PATIENT
  Sex: Female

DRUGS (1)
  1. RAYOS [Suspect]
     Active Substance: PREDNISONE
     Indication: ARTHRITIS

REACTIONS (1)
  - Peripheral swelling [Recovered/Resolved]

NARRATIVE: CASE EVENT DATE: 201508
